FAERS Safety Report 6705925-X (Version None)
Quarter: 2010Q2

REPORT INFORMATION
  Report Type: 
  Country: None (occurrence: None)
  Receive Date: 20100503
  Receipt Date: 20100205
  Transmission Date: 20101027
  Serious: No
  Sender: FDA-Public Use
  Company Number: US-ASTRAZENECA-2010SE05369

PATIENT
  Age: 46 Year
  Sex: Female
  Weight: 61.2 kg

DRUGS (3)
  1. NEXIUM [Suspect]
     Indication: GASTROOESOPHAGEAL REFLUX DISEASE
     Route: 048
  2. PRILOSEC [Suspect]
     Route: 048
  3. LOVASTATIN [Concomitant]
     Indication: HYPERCHOLESTEROLAEMIA

REACTIONS (4)
  - ABDOMINAL PAIN [None]
  - DIARRHOEA [None]
  - DRUG DOSE OMISSION [None]
  - MALAISE [None]
